FAERS Safety Report 18464100 (Version 1)
Quarter: 2020Q4

REPORT INFORMATION
  Report Type: Report from Study
  Country: IT (occurrence: IT)
  Receive Date: 20201104
  Receipt Date: 20201104
  Transmission Date: 20210114
  Serious: Yes (Other)
  Sender: FDA-Public Use
  Company Number: IT-JAZZ-2019-IT-016202

PATIENT
  Age: 20 Year
  Weight: 72 kg

DRUGS (5)
  1. METHYLPREDNISOLONE. [Concomitant]
     Active Substance: METHYLPREDNISOLONE
     Indication: PROPHYLAXIS
  2. DEFITELIO [Suspect]
     Active Substance: DEFIBROTIDE SODIUM
     Indication: PROPHYLAXIS
     Dosage: UNKNOWN DOSAGE
     Dates: start: 20190911, end: 20191005
  3. INOTUZUMAB OZOGAMICIN [Concomitant]
     Active Substance: INOTUZUMAB OZOGAMICIN
     Indication: CHEMOTHERAPY
  4. DEFITELIO [Suspect]
     Active Substance: DEFIBROTIDE SODIUM
     Indication: VENOOCCLUSIVE DISEASE
  5. SODIUM [Concomitant]
     Active Substance: SODIUM
     Indication: VENOOCCLUSIVE DISEASE

REACTIONS (2)
  - Intentional product use issue [Unknown]
  - Venoocclusive disease [Recovered/Resolved]

NARRATIVE: CASE EVENT DATE: 2019
